FAERS Safety Report 6944201-7 (Version None)
Quarter: 2010Q3

REPORT INFORMATION
  Report Type: 
  Country: None (occurrence: None)
  Receive Date: 20100827
  Receipt Date: 20100817
  Transmission Date: 20110219
  Serious: No
  Sender: FDA-Public Use
  Company Number: US-BIOGENIDEC-2010BI028994

PATIENT
  Sex: Male

DRUGS (4)
  1. TYSABRI [Suspect]
     Indication: MULTIPLE SCLEROSIS
     Route: 042
     Dates: start: 20070906, end: 20081216
  2. PAXIL [Concomitant]
  3. VALIUM [Concomitant]
  4. BACLOFEN [Concomitant]

REACTIONS (2)
  - MULTIPLE SCLEROSIS [None]
  - ROAD TRAFFIC ACCIDENT [None]
